FAERS Safety Report 6901555-5 (Version None)
Quarter: 2010Q3

REPORT INFORMATION
  Report Type: 
  Country: None (occurrence: None)
  Receive Date: 20100803
  Receipt Date: 20080214
  Transmission Date: 20110219
  Serious: Yes (Other)
  Sender: FDA-Public Use
  Company Number: US-PFIZER INC-2008014961

PATIENT
  Sex: Female
  Weight: 52.6 kg

DRUGS (6)
  1. LYRICA [Suspect]
     Indication: FIBROMYALGIA
     Dates: start: 20080101
  2. DESYREL [Concomitant]
  3. VISTARIL [Concomitant]
  4. ATIVAN [Concomitant]
  5. HALCION [Concomitant]
  6. OXYCONTIN [Concomitant]

REACTIONS (6)
  - HYPOAESTHESIA [None]
  - MUSCULAR WEAKNESS [None]
  - PAIN [None]
  - PARAESTHESIA [None]
  - SENSORY DISTURBANCE [None]
  - VISUAL ACUITY REDUCED [None]
